FAERS Safety Report 18578511 (Version 3)
Quarter: 2021Q2

REPORT INFORMATION
  Report Type: Other
  Country: JP (occurrence: JP)
  Receive Date: 20201204
  Receipt Date: 20210416
  Transmission Date: 20210717
  Serious: Yes (Hospitalization)
  Sender: FDA-Public Use
  Company Number: JP-ROCHE-2724544

PATIENT
  Age: 77 Year
  Sex: Female
  Weight: 46 kg

DRUGS (12)
  1. BENDAMUSTINE HYDROCHLORIDE. [Concomitant]
     Active Substance: BENDAMUSTINE HYDROCHLORIDE
     Dosage: DOSAGE IS UNCERTAIN.
     Route: 041
     Dates: start: 20200903, end: 20201002
  2. VINCRISTINE SULFATE. [Concomitant]
     Active Substance: VINCRISTINE SULFATE
     Indication: B-CELL LYMPHOMA
     Dosage: DOSAGE IS UNCERTAIN.
     Route: 041
     Dates: start: 20201119, end: 20201210
  3. PREDNISOLONE. [Concomitant]
     Active Substance: PREDNISOLONE
     Indication: B-CELL LYMPHOMA
     Dosage: DOSAGE IS UNCERTAIN.
     Route: 048
     Dates: start: 20201119, end: 20201210
  4. OBINUTUZUMAB. [Suspect]
     Active Substance: OBINUTUZUMAB
     Dosage: DOSE INTERVAL UNCERTAINTY
     Route: 041
     Dates: start: 20201119
  5. OBINUTUZUMAB. [Suspect]
     Active Substance: OBINUTUZUMAB
     Dosage: DOSE INTERVAL UNCERTAINTY
     Route: 041
     Dates: start: 20210206
  6. OBINUTUZUMAB. [Suspect]
     Active Substance: OBINUTUZUMAB
     Dosage: DOSE INTERVAL UNCERTAINTY
     Route: 041
     Dates: start: 20200924
  7. OBINUTUZUMAB. [Suspect]
     Active Substance: OBINUTUZUMAB
     Dosage: DOSE INTERVAL UNCERTAINTY
     Route: 041
     Dates: start: 20201001
  8. OBINUTUZUMAB. [Suspect]
     Active Substance: OBINUTUZUMAB
     Indication: B-CELL LYMPHOMA
     Dosage: DOSE INTERVAL UNCERTAINTY
     Route: 041
     Dates: start: 20200910
  9. CYCLOPHOSPHAMIDE HYDRATE [Concomitant]
     Active Substance: CYCLOPHOSPHAMIDE
     Indication: B-CELL LYMPHOMA
     Dosage: DOSAGE IS UNCERTAIN.
     Route: 041
     Dates: start: 20201119, end: 20201210
  10. OBINUTUZUMAB. [Suspect]
     Active Substance: OBINUTUZUMAB
     Dosage: DOSE INTERVAL UNCERTAINTY
     Route: 041
     Dates: start: 20200917
  11. OBINUTUZUMAB. [Suspect]
     Active Substance: OBINUTUZUMAB
     Dosage: DOSE INTERVAL UNCERTAINTY
     Route: 041
     Dates: start: 20201210
  12. DOXORUBICIN HYDROCHLORIDE. [Concomitant]
     Active Substance: DOXORUBICIN HYDROCHLORIDE
     Indication: B-CELL LYMPHOMA
     Dosage: DOSAGE IS UNCERTAIN.
     Route: 041
     Dates: start: 20201119, end: 20201210

REACTIONS (1)
  - Anaemia [Not Recovered/Not Resolved]

NARRATIVE: CASE EVENT DATE: 20200910
